FAERS Safety Report 6094028-6 (Version None)
Quarter: 2009Q1

REPORT INFORMATION
  Report Type: 
  Country: None (occurrence: None)
  Receive Date: 20090226
  Receipt Date: 20090216
  Transmission Date: 20090719
  Serious: Yes (Death)
  Sender: FDA-Public Use
  Company Number: PH-JNJFOC-20090201917

PATIENT
  Age: 82 Year
  Sex: Female

DRUGS (2)
  1. DORIBAX [Suspect]
     Indication: PNEUMONIA
     Route: 041
  2. MEROPENEM [Concomitant]

REACTIONS (1)
  - SEPSIS [None]
